FAERS Safety Report 9263194 (Version 1)
Quarter: 2013Q2

REPORT INFORMATION
  Report Type: Spontaneous
  Country: US (occurrence: None)
  Receive Date: 20130426
  Receipt Date: 20130426
  Transmission Date: 20140414
  Serious: No
  Sender: FDA-Public Use
  Company Number: None

PATIENT
  Sex: 0

DRUGS (2)
  1. RISPERDAL [Suspect]
  2. ZOLOFT [Suspect]

REACTIONS (7)
  - Tinnitus [None]
  - Paraesthesia [None]
  - Disturbance in attention [None]
  - Thinking abnormal [None]
  - Mental disorder [None]
  - Condition aggravated [None]
  - Product substitution issue [None]
